FAERS Safety Report 10878963 (Version 1)
Quarter: 2015Q1

REPORT INFORMATION
  Report Type: Report from Study
  Country: KR (occurrence: KR)
  Receive Date: 20150302
  Receipt Date: 20150302
  Transmission Date: 20150721
  Serious: Yes (Hospitalization)
  Sender: FDA-Public Use
  Company Number: KR-TAKEDA-2012-00894

PATIENT
  Age: 71 Year
  Sex: Male
  Weight: 56.85 kg

DRUGS (14)
  1. VELCADE [Suspect]
     Active Substance: BORTEZOMIB
     Dosage: 1 MG/M2, UNK
     Route: 042
     Dates: start: 20110721
  2. MELPHALAN [Suspect]
     Active Substance: MELPHALAN
     Indication: PLASMA CELL MYELOMA
     Dosage: 9 MG/M2, UNK
     Route: 065
     Dates: start: 20110601
  3. MELPHALAN [Suspect]
     Active Substance: MELPHALAN
     Dosage: 6.7 MG/M2, UNK
     Route: 065
     Dates: start: 20110907
  4. MELPHALAN [Suspect]
     Active Substance: MELPHALAN
     Dosage: 3.7 MG, UNK
     Route: 065
     Dates: start: 20110919, end: 20111105
  5. PREDNISOLONE. [Suspect]
     Active Substance: PREDNISOLONE
     Indication: PLASMA CELL MYELOMA
     Dosage: 60 MG/M2, UNK
     Route: 065
     Dates: start: 20110601
  6. PREDNISOLONE. [Suspect]
     Active Substance: PREDNISOLONE
     Dosage: 20 MG/M2, UNK
     Route: 065
     Dates: start: 20110602
  7. MELPHALAN [Suspect]
     Active Substance: MELPHALAN
     Dosage: 4.5 MG, UNK
     Route: 065
     Dates: start: 20110610
  8. PREDNISOLONE. [Suspect]
     Active Substance: PREDNISOLONE
     Dosage: 60 MG/M2, UNK
     Route: 065
     Dates: start: 20110721
  9. PREDNISOLONE. [Suspect]
     Active Substance: PREDNISOLONE
     Dosage: 90 MG, UNK
     Route: 065
     Dates: start: 20111214, end: 20111217
  10. MELPHALAN [Suspect]
     Active Substance: MELPHALAN
     Dosage: 6 MG, UNK
     Route: 065
     Dates: start: 20111214, end: 20111217
  11. PREDNISOLONE. [Suspect]
     Active Substance: PREDNISOLONE
     Dosage: 40 MG/M2, UNK
     Route: 065
     Dates: start: 20110604
  12. VELCADE [Suspect]
     Active Substance: BORTEZOMIB
     Indication: PLASMA CELL MYELOMA
     Dosage: 1.3 MG/M2, UNK
     Route: 042
     Dates: start: 20110601
  13. VELCADE [Suspect]
     Active Substance: BORTEZOMIB
     Dosage: 0.7 MG/M2, UNK
     Route: 042
     Dates: start: 20110907
  14. PREDNISOLONE. [Suspect]
     Active Substance: PREDNISOLONE
     Dosage: 56 MG, UNK
     Route: 065
     Dates: start: 20110919, end: 20111105

REACTIONS (1)
  - Hyperkalaemia [Recovered/Resolved]

NARRATIVE: CASE EVENT DATE: 20110630
